FAERS Safety Report 24274876 (Version 2)
Quarter: 2024Q3

REPORT INFORMATION
  Report Type: Spontaneous
  Country: PR (occurrence: PR)
  Receive Date: 20240902
  Receipt Date: 20240920
  Transmission Date: 20241016
  Serious: Yes (Hospitalization, Other)
  Sender: BRISTOL MYERS SQUIBB
  Company Number: PR-BRISTOL-MYERS SQUIBB COMPANY-2024-136019

PATIENT
  Age: 89 Year
  Sex: Male
  Weight: 77.11 kg

DRUGS (7)
  1. THALOMID [Suspect]
     Active Substance: THALIDOMIDE
     Indication: Plasma cell myeloma
     Route: 048
     Dates: start: 20230614
  2. LANTUS [Concomitant]
     Active Substance: INSULIN GLARGINE
  3. HYDRALAZINE HCL [Concomitant]
     Active Substance: HYDRALAZINE HYDROCHLORIDE
     Indication: Product used for unknown indication
  4. SUCRALFATE [Concomitant]
     Active Substance: SUCRALFATE
     Indication: Product used for unknown indication
  5. GABAPENTIN [Concomitant]
     Active Substance: GABAPENTIN
     Indication: Product used for unknown indication
  6. AMLODIPINE [Concomitant]
     Active Substance: AMLODIPINE BESYLATE
     Indication: Product used for unknown indication
  7. HUMULIN N [Concomitant]
     Active Substance: INSULIN HUMAN

REACTIONS (8)
  - Blood calcium increased [Not Recovered/Not Resolved]
  - Asthenia [Unknown]
  - Hand fracture [Not Recovered/Not Resolved]
  - Muscular weakness [Recovering/Resolving]
  - Disorientation [Not Recovered/Not Resolved]
  - Mobility decreased [Unknown]
  - Dyspnoea [Recovering/Resolving]
  - Pulmonary oedema [Recovering/Resolving]

NARRATIVE: CASE EVENT DATE: 20240822
